FAERS Safety Report 12951089 (Version 1)
Quarter: 2016Q4

REPORT INFORMATION
  Report Type: Report from Study
  Country: RU (occurrence: RU)
  Receive Date: 20161117
  Receipt Date: 20161117
  Transmission Date: 20170207
  Serious: Yes (Life-Threatening)
  Sender: FDA-Public Use
  Company Number: PHHO2011RU023850

PATIENT
  Age: 65 Year
  Sex: Male
  Weight: 60 kg

DRUGS (4)
  1. CYCLOPHOSPHAMIDE. [Suspect]
     Active Substance: CYCLOPHOSPHAMIDE
     Indication: CHRONIC LYMPHOCYTIC LEUKAEMIA
     Dosage: 400 MG, UNK
     Route: 042
     Dates: start: 20110920, end: 20111119
  2. OFATUMUMAB [Suspect]
     Active Substance: OFATUMUMAB
     Dosage: 1000 MG, UNK
     Route: 042
     Dates: start: 20110927, end: 20111117
  3. FLUDARABINE PHOSPHATE. [Suspect]
     Active Substance: FLUDARABINE PHOSPHATE
     Indication: CHRONIC LYMPHOCYTIC LEUKAEMIA
     Dosage: 32 MG, UNK
     Route: 042
     Dates: start: 20110920, end: 20111119
  4. OFATUMUMAB [Suspect]
     Active Substance: OFATUMUMAB
     Indication: CHRONIC LYMPHOCYTIC LEUKAEMIA
     Dosage: 300 MG, UNK
     Route: 042
     Dates: start: 20110920, end: 20110920

REACTIONS (1)
  - Febrile neutropenia [Recovered/Resolved]

NARRATIVE: CASE EVENT DATE: 20111123
